FAERS Safety Report 17145367 (Version 4)
Quarter: 2020Q1

REPORT INFORMATION
  Report Type: Report from Study
  Country: US (occurrence: US)
  Receive Date: 20191212
  Receipt Date: 20200319
  Transmission Date: 20200409
  Serious: Yes (Other)
  Sender: FDA-Public Use
  Company Number: US-ROCHE-2490506

PATIENT
  Sex: Female

DRUGS (2)
  1. OCREVUS [Suspect]
     Active Substance: OCRELIZUMAB
     Dosage: NEXT SUBSEQUENT OCRELIZUMAB DOSES: 08/JUN/2017, 22/JUN/2017, 21/DEC/2017, 16/JUL/2018, 21/MAR/2019 A
     Route: 042
     Dates: start: 20171221
  2. OCREVUS [Suspect]
     Active Substance: OCRELIZUMAB
     Indication: PRIMARY PROGRESSIVE MULTIPLE SCLEROSIS
     Dosage: ONGOING : NO
     Route: 042
     Dates: start: 20170608, end: 20170622

REACTIONS (4)
  - Clostridium difficile infection [Unknown]
  - Product use issue [Unknown]
  - Off label use [Unknown]
  - Diarrhoea [Unknown]
